FAERS Safety Report 10375001 (Version 1)
Quarter: 2014Q1

REPORT INFORMATION
  Report Type: Spontaneous
  Country: US (occurrence: None)
  Receive Date: 20140306
  Receipt Date: 20140306
  Transmission Date: 20141002
  Serious: Yes (Other)
  Sender: FDA-Public Use
  Company Number: 163-21880-13121587

PATIENT
  Age: 73 Year
  Sex: Female
  Weight: 64 kg

DRUGS (12)
  1. REVLIMID (LENALIDOMIDE) (25 MILLIGRAM, CAPSULES) [Suspect]
     Indication: PLASMA CELL MYELOMA
     Route: 048
     Dates: start: 201209
  2. ACYCLOVIR (ACICLOVIR) (TABLETS) [Concomitant]
  3. CITALOPRAM (CITALOPRAM) (UNKNOWN) [Concomitant]
  4. DEXAMETHASONE (DEXAMETHASONE) (TABLETS) [Concomitant]
  5. GABAPENTIN (GABAPENTIN) (300 MILLIGRAM, CAPSULES) [Concomitant]
  6. POTASSIUM CHLORIDE (POTASSIUM CHLORIDE) (TABLETS) [Concomitant]
  7. ALDACTONE (SPIRONOLACTONE) (UNKNOWN) [Concomitant]
  8. TUMS (CALCIUM CARBONATE) (TABLETS) [Concomitant]
  9. LEXAPRO (ESCITALOPRAM OXALATE) (TABLETS) [Concomitant]
  10. PRAVASTATIN (PRAVASTATIN) (TABLETS) [Concomitant]
  11. PREDNISONE (PREDNISONE) (TABLETS) [Concomitant]
  12. HYDROCODONE/APAP (VICODIN) (TABLETS) [Concomitant]

REACTIONS (2)
  - Deep vein thrombosis [None]
  - Blood creatinine increased [None]
